FAERS Safety Report 5494862-7 (Version None)
Quarter: 2007Q4

REPORT INFORMATION
  Report Type: 
  Country: None (occurrence: None)
  Receive Date: 20071022
  Receipt Date: 20071008
  Transmission Date: 20080405
  Serious: Yes (Other)
  Sender: FDA-Public Use
  Company Number: DSM-2007-00800

PATIENT
  Age: 68 Year
  Sex: Male

DRUGS (2)
  1. IXIA (OLMESARTAN MEDOXOMIL) (10 MILLIGRAM, TABLET) (OLMESARTAN MEDOXOM [Suspect]
     Indication: HYPERTENSION
     Dosage: (1 IN 1 D), ORAL
     Route: 048
     Dates: start: 20070214, end: 20070606
  2. DIGARIL PROLIB (FLUVASTATIN SODIUM) (80 MILLIGRAM) (FLUVASTATIN SODIUM [Suspect]
     Indication: HYPERCHOLESTEROLAEMIA
     Dosage: ORAL
     Route: 048
     Dates: start: 20070214, end: 20070522

REACTIONS (3)
  - HEPATIC ENZYME INCREASED [None]
  - LIVER DISORDER [None]
  - RENAL FAILURE ACUTE [None]
